FAERS Safety Report 24169317 (Version 1)
Quarter: 2024Q3

REPORT INFORMATION
  Report Type: Spontaneous
  Country: PL (occurrence: PL)
  Receive Date: 20240802
  Receipt Date: 20240802
  Transmission Date: 20241016
  Serious: Yes (Other)
  Sender: TEVA
  Company Number: PL-TEVA-VS-3225859

PATIENT
  Age: 7 Year
  Sex: Female
  Weight: 18 kg

DRUGS (4)
  1. CEFACLOR [Suspect]
     Active Substance: CEFACLOR
     Indication: Cough
     Dosage: TIME INTERVAL: 0.33333333 DAYS: AFTER A FEW DAYS, DUE TO POOR COMPLIANCE, THE DOSAGE WAS MODIFIED...
     Route: 065
  2. CEFACLOR [Suspect]
     Active Substance: CEFACLOR
     Indication: Cough
     Route: 065
  3. ACETAMINOPHEN [Suspect]
     Active Substance: ACETAMINOPHEN
     Indication: Headache
     Route: 065
  4. OCTENIDINE [Concomitant]
     Active Substance: OCTENIDINE
     Indication: Antibiotic therapy
     Route: 061

REACTIONS (7)
  - Anaphylactic reaction [Recovered/Resolved]
  - Drug ineffective [Unknown]
  - Pruritus [Recovered/Resolved]
  - Burning sensation [Recovered/Resolved]
  - Loss of consciousness [Recovered/Resolved]
  - Abdominal pain [Recovered/Resolved]
  - Treatment noncompliance [Unknown]
